FAERS Safety Report 8420057-0 (Version None)
Quarter: 2012Q2

REPORT INFORMATION
  Report Type: 
  Country: None (occurrence: None)
  Receive Date: 20120607
  Receipt Date: 20120523
  Transmission Date: 20120825
  Serious: Yes (Other)
  Sender: FDA-Public Use
  Company Number: CA-FRI-1000031079

PATIENT

DRUGS (5)
  1. CITALOPRAM HYDROBROMIDE [Suspect]
     Indication: INSOMNIA
     Dosage: INCREASED TO 2-3 TABLETS AT NIGHT
  2. LUPRON DEPOT [Suspect]
     Indication: PROSTATE CANCER
     Dates: start: 20100922
  3. ZOPICLONE [Suspect]
     Indication: INSOMNIA
     Dosage: 1-2 TABLETS AT NIGHT
  4. LORAZEPAM [Suspect]
     Indication: INSOMNIA
     Route: 048
  5. ZOPICLONE [Suspect]
     Dosage: 3-4 TABLETS AT NIGHT

REACTIONS (15)
  - GAIT DISTURBANCE [None]
  - ARTHRALGIA [None]
  - NEOPLASM SKIN [None]
  - MEMORY IMPAIRMENT [None]
  - SCIATICA [None]
  - ROAD TRAFFIC ACCIDENT [None]
  - FALL [None]
  - WEIGHT INCREASED [None]
  - PROSTATE CANCER METASTATIC [None]
  - PAIN IN EXTREMITY [None]
  - FATIGUE [None]
  - SOMNOLENCE [None]
  - INSOMNIA [None]
  - WRONG DRUG ADMINISTERED [None]
  - INCREASED APPETITE [None]
